FAERS Safety Report 9743125 (Version 1)
Quarter: 2013Q4

REPORT INFORMATION
  Report Type: Spontaneous
  Country: US (occurrence: US)
  Receive Date: 20131210
  Receipt Date: 20131210
  Transmission Date: 20140711
  Serious: No
  Sender: FDA-Public Use
  Company Number: US-GILEAD-2009-0024471

PATIENT
  Sex: Male

DRUGS (26)
  1. LETAIRIS [Suspect]
     Indication: PULMONARY ARTERIAL HYPERTENSION
     Route: 048
     Dates: start: 20090417
  2. REVATIO [Concomitant]
  3. FUROSEMIDE [Concomitant]
  4. AMILORIDE HCL [Concomitant]
  5. HYDRALAZINE [Concomitant]
  6. UROXATRAL [Concomitant]
  7. TOPAMAX [Concomitant]
  8. AMOXICILLIN [Concomitant]
  9. RIFAMPIN [Concomitant]
  10. SMZ-TMP DS [Concomitant]
  11. MORPHINE SULFATE [Concomitant]
  12. METHADONE [Concomitant]
  13. TYLENOL [Concomitant]
  14. LORATADINE [Concomitant]
  15. GABAPENTIN [Concomitant]
  16. ZINC SULFATE [Concomitant]
  17. NYSTATIN [Concomitant]
  18. LACTULOSE [Concomitant]
  19. OMEPRAZOLE [Concomitant]
  20. CALCIUM CARBONATE [Concomitant]
  21. CALCITRIOL [Concomitant]
  22. FERROUS SULFATE [Concomitant]
  23. VITAMIN D [Concomitant]
  24. POTASSIUM CHLORIDE [Concomitant]
  25. MAGNESIUM [Concomitant]
  26. VITAMIN C [Concomitant]

REACTIONS (1)
  - Nasal obstruction [Unknown]
